FAERS Safety Report 18966691 (Version 1)
Quarter: 2021Q1

REPORT INFORMATION
  Report Type: Spontaneous
  Country: DE (occurrence: DE)
  Receive Date: 20210303
  Receipt Date: 20210303
  Transmission Date: 20210420
  Serious: Yes (Hospitalization)
  Sender: FDA-Public Use
  Company Number: DE-TEVA-2021-DE-1885096

PATIENT
  Age: 16 Year
  Sex: Female
  Weight: 54 kg

DRUGS (2)
  1. QUETIAPIN [Concomitant]
     Active Substance: QUETIAPINE
     Dosage: 100MG ? 0 ? 150MG
     Route: 048
  2. IBUPROFEN. [Suspect]
     Active Substance: IBUPROFEN
     Dosage: 6?8 TABLETS, UNIT DOSE : 400 MG
     Route: 048
     Dates: start: 20181027, end: 20181027

REACTIONS (2)
  - Gait disturbance [Recovered/Resolved]
  - Intentional overdose [Recovered/Resolved]

NARRATIVE: CASE EVENT DATE: 20181027
